FAERS Safety Report 16878070 (Version 4)
Quarter: 2019Q4

REPORT INFORMATION
  Report Type: Spontaneous
  Country: US (occurrence: US)
  Receive Date: 20191002
  Receipt Date: 20191106
  Transmission Date: 20200122
  Serious: No
  Sender: FDA-Public Use
  Company Number: US-ALKERMES INC.-ALK-2019-005163

PATIENT
  Age: 70 Year
  Sex: Female

DRUGS (6)
  1. ARISTADA [Suspect]
     Active Substance: ARIPIPRAZOLE LAUROXIL
     Dosage: 882 MG, Q6WK
     Route: 030
     Dates: start: 20170202, end: 20170202
  2. ARISTADA [Suspect]
     Active Substance: ARIPIPRAZOLE LAUROXIL
     Indication: PRODUCT USED FOR UNKNOWN INDICATION
     Dosage: 882 MG, Q6WK
     Route: 030
  3. ARIPIPRAZOLE. [Concomitant]
     Active Substance: ARIPIPRAZOLE
     Indication: PRODUCT USED FOR UNKNOWN INDICATION
     Dosage: UNK, ONE TIME DOSE
     Route: 048
     Dates: start: 20190814, end: 20190814
  4. ARISTADA INITIO [Suspect]
     Active Substance: ARIPIPRAZOLE LAUROXIL
     Indication: SCHIZOPHRENIA
     Dosage: 675 MG, ONE TIME DOSE
     Route: 030
     Dates: start: 20190814, end: 20190814
  5. ARISTADA INITIO [Suspect]
     Active Substance: ARIPIPRAZOLE LAUROXIL
     Indication: MAJOR DEPRESSION
  6. ARISTADA INITIO [Suspect]
     Active Substance: ARIPIPRAZOLE LAUROXIL
     Indication: DISORIENTATION

REACTIONS (5)
  - Injection site swelling [Recovering/Resolving]
  - Off label use [Recovering/Resolving]
  - Injection site mass [Recovering/Resolving]
  - Injection site bruising [Recovering/Resolving]
  - Injection site erythema [Recovering/Resolving]

NARRATIVE: CASE EVENT DATE: 2019
